FAERS Safety Report 25406464 (Version 1)
Quarter: 2025Q2

REPORT INFORMATION
  Report Type: Spontaneous
  Country: CO (occurrence: CO)
  Receive Date: 20250606
  Receipt Date: 20250606
  Transmission Date: 20250717
  Serious: Yes (Other)
  Sender: AMGEN
  Company Number: CO-PFIZER INC-PV202500065992

PATIENT
  Age: 71 Year
  Sex: Female

DRUGS (1)
  1. ENBREL [Suspect]
     Active Substance: ETANERCEPT
     Indication: Product used for unknown indication
     Dosage: 50 MG, WEEKLY
     Route: 065

REACTIONS (2)
  - Spinal disorder [Unknown]
  - Drug ineffective [Unknown]
